FAERS Safety Report 4764402-6 (Version None)
Quarter: 2005Q3

REPORT INFORMATION
  Report Type: 
  Country: None (occurrence: None)
  Receive Date: 20050906
  Receipt Date: 20050826
  Transmission Date: 20060218
  Serious: Yes (Hospitalization)
  Sender: FDA-Public Use
  Company Number: HQWYE160329AUG05

PATIENT
  Age: 89 Year
  Sex: Female

DRUGS (4)
  1. BLINDED THERAPY FOR TEMSIROLIMUS [Concomitant]
     Indication: BREAST CANCER METASTATIC
     Dosage: 30 MG DAILY
     Dates: start: 20050127
  2. BLINDED THERAPY FOR TEMSIROLIMUS [Concomitant]
  3. LETROZOLE [Suspect]
     Indication: BREAST CANCER METASTATIC
     Dosage: 2.5 MG 1X PER 1 DAY ORAL
     Route: 048
     Dates: start: 20050127
  4. LETROZOLE [Suspect]

REACTIONS (1)
  - CELLULITIS [None]
